FAERS Safety Report 9332812 (Version 1)
Quarter: 2013Q2

REPORT INFORMATION
  Report Type: Spontaneous
  Country: US (occurrence: US)
  Receive Date: 20130606
  Receipt Date: 20130606
  Transmission Date: 20140414
  Serious: Yes (Other)
  Sender: FDA-Public Use
  Company Number: US-BRISTOL-MYERS SQUIBB COMPANY-18961946

PATIENT
  Age: 63 Year
  Sex: Female

DRUGS (1)
  1. ABATACEPT SUBQ INJECTION 125MG/ML [Suspect]
     Dosage: LAST INJECTION WAS ON THE 27TH OR 20TH OF THIS MONTH.?1DF:125MG/ML UNIT.
     Route: 058

REACTIONS (2)
  - Accident [Unknown]
  - Abasia [Unknown]
